FAERS Safety Report 26123324 (Version 3)
Quarter: 2025Q4

REPORT INFORMATION
  Report Type: Report from Study
  Country: US (occurrence: US)
  Receive Date: 20251204
  Receipt Date: 20251214
  Transmission Date: 20260117
  Serious: Yes (Other)
  Sender: ABBVIE
  Company Number: US-ABBVIE-6574684

PATIENT
  Age: 64 Year
  Sex: Female
  Weight: 88 kg

DRUGS (9)
  1. SKYRIZI [Suspect]
     Active Substance: RISANKIZUMAB-RZAA
     Indication: Psoriasis
     Dosage: FORM STRENGTH: 150 MILLIGRAM
     Route: 058
     Dates: start: 20250301
  2. BETAMETHASONE [Concomitant]
     Active Substance: BETAMETHASONE
     Indication: Product used for unknown indication
  3. ALLOPURINOL [Concomitant]
     Active Substance: ALLOPURINOL
     Indication: Product used for unknown indication
     Dosage: 300 MILLIGRAM
  4. AMITRIPTYLINE [Concomitant]
     Active Substance: AMITRIPTYLINE
     Indication: Product used for unknown indication
     Dosage: FORM STRENGTH: 25 MG
  5. AMLODIPINE [Concomitant]
     Active Substance: AMLODIPINE BESYLATE
     Indication: Product used for unknown indication
  6. CLONAZEPAM [Concomitant]
     Active Substance: CLONAZEPAM
     Indication: Product used for unknown indication
  7. ZOLPIDEM TARTRATE [Concomitant]
     Active Substance: ZOLPIDEM TARTRATE
     Indication: Product used for unknown indication
  8. NIACIN [Concomitant]
     Active Substance: NIACIN
     Indication: Product used for unknown indication
  9. CEFDINIR [Concomitant]
     Active Substance: CEFDINIR
     Indication: Product used for unknown indication
     Dosage: FORM STRENGTH: 300 MG

REACTIONS (4)
  - Surgery [Recovering/Resolving]
  - Exostosis [Unknown]
  - Pain in extremity [Unknown]
  - Rotator cuff syndrome [Unknown]

NARRATIVE: CASE EVENT DATE: 20250101
